FAERS Safety Report 15487449 (Version 1)
Quarter: 2018Q4

REPORT INFORMATION
  Report Type: Spontaneous
  Country: US (occurrence: US)
  Receive Date: 20181003
  Receipt Date: 20181003
  Transmission Date: 20190205
  Serious: Yes (Hospitalization, Other)
  Sender: FDA-Public Use
  Company Number: None

PATIENT
  Age: 71 Year
  Sex: Male

DRUGS (1)
  1. IBUPROFEN. [Suspect]
     Active Substance: IBUPROFEN
     Indication: PAIN
     Dates: start: 20180824, end: 20180824

REACTIONS (3)
  - Respiratory failure [None]
  - Asthma [None]
  - Bronchospasm [None]

NARRATIVE: CASE EVENT DATE: 20180824
